FAERS Safety Report 9150152 (Version 1)
Quarter: 2013Q1

REPORT INFORMATION
  Report Type: Spontaneous
  Country: US (occurrence: US)
  Receive Date: 20130308
  Receipt Date: 20130308
  Transmission Date: 20140127
  Serious: Yes (Other)
  Sender: FDA-Public Use
  Company Number: US-TEVA-388390USA

PATIENT
  Age: 69 Year
  Sex: 0

DRUGS (2)
  1. TREANDA [Suspect]
     Indication: CHRONIC LYMPHOCYTIC LEUKAEMIA
     Dosage: D 1 + 2 Q 28 DAYS
     Route: 042
     Dates: start: 20120913, end: 20120913
  2. RITUXAN [Suspect]

REACTIONS (1)
  - Acute coronary syndrome [Unknown]
